FAERS Safety Report 9493272 (Version 3)
Quarter: 2014Q2

REPORT INFORMATION
  Report Type: Spontaneous
  Country: CN (occurrence: CN)
  Receive Date: 20130902
  Receipt Date: 20140515
  Transmission Date: 20141212
  Serious: Yes (Other)
  Sender: FDA-Public Use
  Company Number: PHHY2013CN078598

PATIENT
  Age: 47 Year
  Sex: Female

DRUGS (1)
  1. SANDOSTATIN LAR [Suspect]
     Indication: ACROMEGALY
     Dosage: 20 MG ONCE IN 28 DAYS
     Route: 030
     Dates: start: 20130621, end: 20130729

REACTIONS (2)
  - Otitis media [Recovering/Resolving]
  - Deafness [Recovered/Resolved]
